FAERS Safety Report 5533343-9 (Version None)
Quarter: 2007Q4

REPORT INFORMATION
  Report Type: 
  Country: None (occurrence: None)
  Receive Date: 20071204
  Receipt Date: 20071126
  Transmission Date: 20080405
  Serious: Yes (Other)
  Sender: FDA-Public Use
  Company Number: US-JNJFOC-20071109824

PATIENT
  Age: 11 Year
  Sex: Male

DRUGS (5)
  1. TOPAMAX [Suspect]
     Indication: MIGRAINE
     Route: 048
  2. TOPAMAX [Suspect]
     Indication: EPILEPSY
     Route: 048
  3. TOPAMAX [Suspect]
     Route: 048
  4. TOPAMAX [Suspect]
     Route: 048
  5. LACTAID [Interacting]
     Indication: LACTOSE INTOLERANCE
     Route: 048

REACTIONS (4)
  - ABDOMINAL PAIN UPPER [None]
  - CONVULSION [None]
  - DRUG INTERACTION [None]
  - LACTOSE INTOLERANCE [None]
